FAERS Safety Report 7580586-9 (Version None)
Quarter: 2011Q2

REPORT INFORMATION
  Report Type: 
  Country: None (occurrence: None)
  Receive Date: 20110629
  Receipt Date: 20110620
  Transmission Date: 20111010
  Serious: Yes (Hospitalization)
  Sender: FDA-Public Use
  Company Number: B0690472A

PATIENT
  Age: 71 Year
  Sex: Female

DRUGS (13)
  1. MODOPAR [Concomitant]
     Dosage: 125MG THREE TIMES PER DAY
     Route: 048
  2. LYRICA [Concomitant]
     Dosage: 75MG PER DAY
     Route: 048
  3. TRIVASTAL LP [Concomitant]
     Dosage: 50MG PER DAY
     Route: 048
  4. LEVOTHYROXINE SODIUM [Concomitant]
     Dosage: 175MCG PER DAY
     Route: 048
  5. REQUIP [Concomitant]
     Dosage: .5MG THREE TIMES PER DAY
     Route: 048
  6. ISOPTIN [Concomitant]
     Dosage: 120MG TWICE PER DAY
     Route: 048
  7. RED BLOOD CELLS [Concomitant]
     Dosage: 2UNIT CUMULATIVE DOSE
  8. AMOXICILLIN AND CLAVULANATE POTASSIUM [Suspect]
     Indication: ACINETOBACTER INFECTION
     Dosage: 3G SIX TIMES PER DAY
     Route: 042
     Dates: start: 20101115, end: 20101125
  9. RAMIPRIL [Concomitant]
     Dosage: 2.5MG PER DAY
     Route: 048
  10. FOSAVANCE [Concomitant]
     Dosage: 1TAB WEEKLY
     Route: 048
  11. CIPROFLOXACIN [Concomitant]
     Dosage: 1TAB TWICE PER DAY
     Route: 048
     Dates: start: 20101115
  12. MODOPAR [Concomitant]
     Dosage: 62.5MG THREE TIMES PER DAY
     Route: 048
  13. MODOPAR [Concomitant]
     Dosage: 250MG PER DAY
     Route: 048

REACTIONS (2)
  - PRURITUS [None]
  - EOSINOPHILIA [None]
